FAERS Safety Report 14195141 (Version 3)
Quarter: 2018Q1

REPORT INFORMATION
  Report Type: Spontaneous
  Country: JP (occurrence: JP)
  Receive Date: 20171116
  Receipt Date: 20180122
  Transmission Date: 20180508
  Serious: Yes (Other)
  Sender: FDA-Public Use
  Company Number: JP-SA-2017SA224547

PATIENT
  Age: 2 Year
  Sex: Male

DRUGS (5)
  1. PROTOPIC [Concomitant]
     Active Substance: TACROLIMUS
  2. XYZAL ALLERGY 24HR [Suspect]
     Active Substance: LEVOCETIRIZINE DIHYDROCHLORIDE
     Indication: DERMATITIS ATOPIC
     Route: 048
     Dates: start: 201704, end: 20171106
  3. XYZAL ALLERGY 24HR [Suspect]
     Active Substance: LEVOCETIRIZINE DIHYDROCHLORIDE
     Indication: ATOPY
     Route: 048
     Dates: start: 201704, end: 20171106
  4. LOCOID [Concomitant]
     Active Substance: HYDROCORTISONE BUTYRATE
  5. HIRUDOID [Concomitant]
     Active Substance: GLYCOSAMINOGLYCANS
     Route: 065

REACTIONS (2)
  - Purpura [Not Recovered/Not Resolved]
  - Haemorrhage subcutaneous [Not Recovered/Not Resolved]

NARRATIVE: CASE EVENT DATE: 201710
